FAERS Safety Report 23786909 (Version 1)
Quarter: 2024Q2

REPORT INFORMATION
  Report Type: Spontaneous
  Country: AU (occurrence: AU)
  Receive Date: 20240426
  Receipt Date: 20240426
  Transmission Date: 20240715
  Serious: Yes (Death, Other)
  Sender: FDA-Public Use
  Company Number: AU-AUS-LIT/AUS/24/0006139

PATIENT
  Age: 57 Year
  Sex: Male

DRUGS (16)
  1. TERBINAFINE [Suspect]
     Active Substance: TERBINAFINE
     Indication: Endophthalmitis
     Dosage: 250MG TWICE DAILY
  2. CASPOFUNGIN [Suspect]
     Active Substance: CASPOFUNGIN
     Indication: Endophthalmitis
     Dosage: 100 ?G/0.1ML INTRAVITREOUS INJECTION
  3. AMPHOTERICIN B [Suspect]
     Active Substance: AMPHOTERICIN B
     Indication: Endophthalmitis
     Dosage: 10?G/0.1ML
  4. VORICONAZOLE [Suspect]
     Active Substance: VORICONAZOLE
     Indication: Endophthalmitis
     Dosage: 200MG TWICE DAILY
     Route: 048
  5. VORICONAZOLE [Suspect]
     Active Substance: VORICONAZOLE
     Dosage: 250MG TWICE A DAY
     Route: 048
  6. VORICONAZOLE [Suspect]
     Active Substance: VORICONAZOLE
     Dosage: INTRAVITREOUS INJECTION OF VORICONAZOLE (100?G/0.1ML)
     Route: 048
  7. SULFAMETHOXAZOLE\TRIMETHOPRIM [Suspect]
     Active Substance: SULFAMETHOXAZOLE\TRIMETHOPRIM
     Indication: Endophthalmitis
  8. VALGANCICLOVIR [Suspect]
     Active Substance: VALGANCICLOVIR
     Indication: Prophylaxis
  9. CEFTAZIDIME [Suspect]
     Active Substance: CEFTAZIDIME
     Indication: Endophthalmitis
  10. VANCOMYCIN [Suspect]
     Active Substance: VANCOMYCIN
     Indication: Endophthalmitis
     Dosage: VITREOUS
  11. FOSCARNET [Suspect]
     Active Substance: FOSCARNET
     Indication: Endophthalmitis
     Dosage: VITREOUS
  12. MICAFUNGIN [Suspect]
     Active Substance: MICAFUNGIN SODIUM
     Indication: Endophthalmitis
     Dosage: 300MG LOADING
  13. MICAFUNGIN [Suspect]
     Active Substance: MICAFUNGIN SODIUM
     Dosage: FOLLOWED BY 150MG DAILY
  14. OLOROFIM [Suspect]
     Active Substance: OLOROFIM
     Indication: Endophthalmitis
     Dosage: LOADING DOSE OF OLOROFIM (150MG DAILY)
  15. OLOROFIM [Suspect]
     Active Substance: OLOROFIM
     Dosage: 90MG TWICE DAILY ONGOING
  16. TACROLIMUS [Concomitant]
     Active Substance: TACROLIMUS
     Indication: Immunosuppressant drug therapy

REACTIONS (3)
  - Drug ineffective for unapproved indication [Fatal]
  - Neutropenia [Unknown]
  - Acute kidney injury [Unknown]
